FAERS Safety Report 25555753 (Version 1)
Quarter: 2025Q3

REPORT INFORMATION
  Report Type: Spontaneous
  Country: US (occurrence: US)
  Receive Date: 20250715
  Receipt Date: 20250715
  Transmission Date: 20251021
  Serious: Yes (Other)
  Sender: BAYER HEALTHCARE PHARMACEUTICALS INC.
  Company Number: US-BAYER-2025A092569

PATIENT
  Age: 48 Year
  Sex: Female

DRUGS (4)
  1. ADEMPAS [Suspect]
     Active Substance: RIOCIGUAT
     Indication: Product used for unknown indication
  2. UPTRAVI [Concomitant]
     Active Substance: SELEXIPAG
     Indication: Pulmonary arterial hypertension
     Dosage: 200 ?G, BID
     Route: 048
     Dates: start: 202107
  3. AMBRISENTAN [Concomitant]
     Active Substance: AMBRISENTAN
     Indication: Pulmonary arterial hypertension
  4. WINREVAIR [Concomitant]
     Active Substance: SOTATERCEPT-CSRK
     Indication: Product used for unknown indication

REACTIONS (10)
  - Bendopnoea [None]
  - General physical health deterioration [None]
  - Weight increased [None]
  - Dizziness [Not Recovered/Not Resolved]
  - Chest pain [None]
  - Fatigue [None]
  - Fluid retention [None]
  - Intra-abdominal fluid collection [None]
  - Mood altered [None]
  - Dyspnoea exertional [None]

NARRATIVE: CASE EVENT DATE: 20250601
